FAERS Safety Report 8851856 (Version 1)
Quarter: 2012Q4

REPORT INFORMATION
  Report Type: 
  Country: JP (occurrence: JP)
  Receive Date: 20121022
  Receipt Date: 20121022
  Transmission Date: 20130627
  Serious: Yes (Other)
  Sender: FDA-Public Use
  Company Number: JP-009507513-1210JPN006770

PATIENT
  Age: 57 Year
  Sex: Female
  Weight: 72 kg

DRUGS (13)
  1. PEGINTRON [Suspect]
     Indication: HEPATITIS C
     Dosage: 1.5 Microgram per kilogram, qw
     Route: 058
     Dates: start: 20120619
  2. PEGINTRON [Suspect]
     Dosage: UNK
     Route: 058
     Dates: end: 20120814
  3. PEGINTRON [Suspect]
     Dosage: 50 Microgram per kilogram, qw
     Route: 058
     Dates: start: 20120821
  4. REBETOL [Suspect]
     Indication: HEPATITIS C
     Dosage: 800 mg, qd
     Route: 048
     Dates: start: 20120619, end: 20120709
  5. REBETOL [Suspect]
     Dosage: 600 mg, qd
     Route: 048
     Dates: start: 20120710, end: 20120806
  6. REBETOL [Suspect]
     Dosage: 400 mg, qd
     Route: 048
     Dates: start: 20120807, end: 20120814
  7. REBETOL [Suspect]
     Dosage: 200 mg, qd
     Route: 048
     Dates: start: 20120828, end: 20120910
  8. REBETOL [Suspect]
     Dosage: 400 mg, qd
     Route: 048
     Dates: start: 20120911
  9. TELAVIC [Concomitant]
     Indication: HEPATITIS C
     Dosage: 2250 mg, qd
     Route: 048
     Dates: start: 20120619, end: 20120723
  10. TELAVIC [Concomitant]
     Dosage: 1500 mg, qd
     Route: 048
     Dates: start: 20120724, end: 20120813
  11. TELAVIC [Concomitant]
     Dosage: 1000 mg, qd
     Route: 048
     Dates: start: 20120828, end: 20120903
  12. TELAVIC [Concomitant]
     Dosage: 1500 mg, qd
     Route: 048
     Dates: start: 20120904
  13. TELAVIC [Concomitant]
     Dosage: 1000 mg, qd
     Route: 048
     Dates: start: 20120907, end: 20120910

REACTIONS (2)
  - Anaemia [Recovering/Resolving]
  - Anaemia [Not Recovered/Not Resolved]
